FAERS Safety Report 15140337 (Version 1)
Quarter: 2018Q3

REPORT INFORMATION
  Report Type: Spontaneous
  Country: DE (occurrence: DE)
  Receive Date: 20180713
  Receipt Date: 20180713
  Transmission Date: 20181010
  Serious: Yes (Hospitalization, Other)
  Sender: FDA-Public Use
  Company Number: DE-TEVA-2018-DE-923972

PATIENT
  Age: 48 Year
  Sex: Female

DRUGS (3)
  1. CARBOPLATIN. [Suspect]
     Active Substance: CARBOPLATIN
     Indication: NON-SMALL CELL LUNG CANCER
     Dosage: 5AUC
     Route: 042
     Dates: start: 20130208
  2. AVASTIN [Suspect]
     Active Substance: BEVACIZUMAB
     Indication: NON-SMALL CELL LUNG CANCER
     Dosage: 7.5 MG/KG DAILY; LAST BEVACIZUMAB INFUSION PRIOR THE EVENT OF LUNG EMBOLISM 02/APR/2013
     Route: 042
     Dates: start: 20130208, end: 20131230
  3. PACLITAXEL. [Suspect]
     Active Substance: PACLITAXEL
     Indication: NON-SMALL CELL LUNG CANCER
     Route: 042
     Dates: start: 20130208

REACTIONS (8)
  - Asthenia [Unknown]
  - Abdominal pain [Recovering/Resolving]
  - Pulmonary embolism [Recovered/Resolved]
  - Dizziness [Recovered/Resolved]
  - Diarrhoea haemorrhagic [Recovered/Resolved]
  - Blindness [Not Recovered/Not Resolved]
  - Diarrhoea [Recovering/Resolving]
  - General physical health deterioration [Recovered/Resolved]

NARRATIVE: CASE EVENT DATE: 20130319
